FAERS Safety Report 15237065 (Version 1)
Quarter: 2018Q3

REPORT INFORMATION
  Report Type: Spontaneous
  Country: US (occurrence: US)
  Receive Date: 20180803
  Receipt Date: 20180803
  Transmission Date: 20181010
  Serious: No
  Sender: FDA-Public Use
  Company Number: US-SA-2018SA209485

PATIENT
  Age: 36 Year
  Sex: Female

DRUGS (4)
  1. VITAMIN D [COLECALCIFEROL] [Concomitant]
     Dosage: 2000 U
  2. MAGNESIUM [Concomitant]
     Active Substance: MAGNESIUM
     Dosage: 500 MG
  3. AUBAGIO [Suspect]
     Active Substance: TERIFLUNOMIDE
     Dosage: 14 MG, QD
     Route: 048
     Dates: start: 20180725
  4. OMEGA 3 [FISH OIL] [Concomitant]
     Dosage: 1200 MG

REACTIONS (8)
  - Hypoaesthesia [Unknown]
  - Eye movement disorder [Unknown]
  - Disturbance in attention [Unknown]
  - Muscle spasms [Unknown]
  - Gait inability [Unknown]
  - Depressed mood [Unknown]
  - Memory impairment [Unknown]
  - Asthenia [Unknown]
